FAERS Safety Report 4407559-9 (Version None)
Quarter: 2004Q3

REPORT INFORMATION
  Report Type: 
  Country: None (occurrence: None)
  Receive Date: 20040721
  Receipt Date: 20040702
  Transmission Date: 20050211
  Serious: Yes (Hospitalization)
  Sender: FDA-Public Use
  Company Number: DE_040613851

PATIENT
  Age: 75 Year
  Sex: Female

DRUGS (11)
  1. ZYPREXA [Suspect]
     Indication: DEPRESSION
     Dosage: 5 MG IN THE EVENING
     Dates: end: 20040225
  2. ZYPREXA [Suspect]
     Indication: DISEASE RECURRENCE
     Dosage: 5 MG IN THE EVENING
     Dates: end: 20040225
  3. REBOXETINE [Concomitant]
  4. DOMINAL FORTE (PROTHIPENDYL HYDROCHLORIDE) [Concomitant]
  5. SOTALOL HCL [Concomitant]
  6. ENALAPRIL MALEATE [Concomitant]
  7. DIPIPERON [Concomitant]
  8. VIGANTOLETTEN (COLECALCIFEROL) [Concomitant]
  9. KALINOR (POTASSIUM CHLORIDE) [Concomitant]
  10. ASPIRIN [Concomitant]
  11. LACTULOSE [Concomitant]

REACTIONS (3)
  - HYPOTONIA [None]
  - PLEUROTHOTONUS [None]
  - THERAPEUTIC AGENT TOXICITY [None]
